FAERS Safety Report 7249585-0 (Version None)
Quarter: 2011Q1

REPORT INFORMATION
  Report Type: 
  Country: None (occurrence: None)
  Receive Date: 20110128
  Receipt Date: 20101130
  Transmission Date: 20110831
  Serious: Yes (Hospitalization, Other)
  Sender: FDA-Public Use
  Company Number: US-BAYER-201038062NA

PATIENT
  Sex: Female
  Weight: 65.76 kg

DRUGS (9)
  1. YAZ [Suspect]
     Indication: ACNE
  2. YASMIN [Suspect]
     Indication: ACNE
  3. NSAID'S [Concomitant]
     Dosage: UNK
     Dates: start: 20070101, end: 20080101
  4. YAZ [Suspect]
     Indication: CONTRACEPTION
     Dosage: UNK
     Dates: start: 20070601, end: 20071201
  5. YASMIN [Suspect]
     Indication: CONTRACEPTION
     Dosage: UNK
  6. OCELLA [Suspect]
     Indication: ACNE
  7. LEXAPRO [Concomitant]
     Dosage: 5 MG, UNK
     Route: 048
  8. CONCERTA [Concomitant]
  9. PHENOBARBITAL [Concomitant]
     Dosage: UNK
     Dates: start: 20070101, end: 20080101

REACTIONS (6)
  - BILIARY DYSKINESIA [None]
  - INJURY [None]
  - ABDOMINAL PAIN [None]
  - NEPHROLITHIASIS [None]
  - ABDOMINAL PAIN UPPER [None]
  - NAUSEA [None]
